FAERS Safety Report 8869410 (Version 1)
Quarter: 2012Q4

REPORT INFORMATION
  Report Type: 
  Country: US (occurrence: US)
  Receive Date: 20121028
  Receipt Date: 20121028
  Transmission Date: 20130627
  Serious: Yes (Other)
  Sender: FDA-Public Use
  Company Number: US-TEVA-366179USA

PATIENT
  Sex: Female

DRUGS (2)
  1. COPAXONE [Suspect]
     Indication: MULTIPLE SCLEROSIS
     Dates: start: 20090529
  2. SYNTHROID [Concomitant]

REACTIONS (3)
  - Autoimmune thyroiditis [Unknown]
  - Fatigue [Unknown]
  - Asthenia [Unknown]
